FAERS Safety Report 19247406 (Version 1)
Quarter: 2021Q2

REPORT INFORMATION
  Report Type: Spontaneous
  Country: US (occurrence: US)
  Receive Date: 20210512
  Receipt Date: 20210512
  Transmission Date: 20210717
  Serious: Yes (Hospitalization, Other)
  Sender: FDA-Public Use
  Company Number: US-PFIZER INC-2021326574

PATIENT
  Age: 48 Year
  Sex: Female
  Weight: 111.13 kg

DRUGS (1)
  1. IBRANCE [Suspect]
     Active Substance: PALBOCICLIB
     Indication: BREAST CANCER FEMALE
     Dosage: 100 MG, CYCLIC (21 DAYS ON AND SEVEN DAYS OFF)
     Route: 048
     Dates: start: 20210216

REACTIONS (5)
  - Thrombosis [Unknown]
  - Diarrhoea [Unknown]
  - Infected neoplasm [Unknown]
  - Fatigue [Unknown]
  - Malaise [Unknown]

NARRATIVE: CASE EVENT DATE: 20210313
